FAERS Safety Report 25943502 (Version 3)
Quarter: 2025Q4

REPORT INFORMATION
  Report Type: Spontaneous
  Country: JP (occurrence: JP)
  Receive Date: 20251021
  Receipt Date: 20251120
  Transmission Date: 20260118
  Serious: Yes (Hospitalization, Other)
  Sender: SANOFI AVENTIS
  Company Number: JP-SA-2025SA309653

PATIENT
  Age: 79 Year
  Sex: Male
  Weight: 60 kg

DRUGS (18)
  1. ISONIAZID [Suspect]
     Active Substance: ISONIAZID
     Indication: Latent tuberculosis
     Dosage: 300 MG, QD
  2. RIFAMPIN [Suspect]
     Active Substance: RIFAMPIN
     Indication: Latent tuberculosis
     Dosage: 450 MG, QD
     Route: 065
  3. RIFAMPIN [Suspect]
     Active Substance: RIFAMPIN
     Dosage: 25 MG, QD
  4. RIFAMPIN [Suspect]
     Active Substance: RIFAMPIN
     Dosage: 50 MG, QD
  5. RIFAMPIN [Suspect]
     Active Substance: RIFAMPIN
     Dosage: 75 MG, QD
  6. RIFAMPIN [Suspect]
     Active Substance: RIFAMPIN
     Dosage: 50 MG, QD
  7. ETHAMBUTOL [Suspect]
     Active Substance: ETHAMBUTOL HYDROCHLORIDE
     Indication: Latent tuberculosis
     Dosage: 750 MG, QD
  8. ETHAMBUTOL [Suspect]
     Active Substance: ETHAMBUTOL HYDROCHLORIDE
     Dosage: 500 MG, QD
  9. ETHAMBUTOL [Suspect]
     Active Substance: ETHAMBUTOL HYDROCHLORIDE
     Dosage: 50 MG, QD
  10. ETHAMBUTOL [Suspect]
     Active Substance: ETHAMBUTOL HYDROCHLORIDE
     Dosage: 100 MG, QD
  11. ETHAMBUTOL [Suspect]
     Active Substance: ETHAMBUTOL HYDROCHLORIDE
     Dosage: 200 MG  (200 MG/WEEK3)
  12. LEVOFLOXACIN [Suspect]
     Active Substance: LEVOFLOXACIN
     Indication: Latent tuberculosis
     Dosage: 500 MG, QD
     Route: 065
  13. ETHIONAMIDE [Suspect]
     Active Substance: ETHIONAMIDE
     Indication: Latent tuberculosis
     Dosage: 300 MG, QD
  14. ETHIONAMIDE [Suspect]
     Active Substance: ETHIONAMIDE
     Dosage: 100 MG, QD
  15. ETHIONAMIDE [Suspect]
     Active Substance: ETHIONAMIDE
     Dosage: 200 MG, QD
  16. ETHIONAMIDE [Suspect]
     Active Substance: ETHIONAMIDE
     Dosage: 100 MG, QD
  17. ETHIONAMIDE [Suspect]
     Active Substance: ETHIONAMIDE
     Dosage: 300 MG, QD
  18. PYRAZINAMIDE [Concomitant]
     Active Substance: PYRAZINAMIDE
     Indication: Latent tuberculosis
     Dosage: 1200 MG, QD DAY 1

REACTIONS (8)
  - Hypothyroidism [Recovering/Resolving]
  - Dysgeusia [Recovering/Resolving]
  - Malaise [Recovering/Resolving]
  - Decreased appetite [Recovering/Resolving]
  - Dermatitis exfoliative generalised [Recovering/Resolving]
  - Pruritus [Recovering/Resolving]
  - Rash [Recovering/Resolving]
  - Renal impairment [Unknown]
